FAERS Safety Report 5811385-3 (Version None)
Quarter: 2008Q3

REPORT INFORMATION
  Report Type: 
  Country: None (occurrence: None)
  Receive Date: 20080716
  Receipt Date: 20080709
  Transmission Date: 20090109
  Serious: Yes (Death)
  Sender: FDA-Public Use
  Company Number: JP-AVENTIS-200811737JP

PATIENT
  Age: 70 Year
  Sex: Male
  Weight: 47.5 kg

DRUGS (4)
  1. TAXOTERE [Suspect]
     Indication: NON-SMALL CELL LUNG CANCER RECURRENT
     Dosage: DOSE: 40 MG
     Route: 041
     Dates: start: 20080301, end: 20080414
  2. DECADRON [Concomitant]
  3. GASTER [Concomitant]
  4. SEROTONE [Concomitant]

REACTIONS (3)
  - DYSPNOEA [None]
  - INTERSTITIAL LUNG DISEASE [None]
  - PYREXIA [None]
